FAERS Safety Report 4507710-6 (Version None)
Quarter: 2004Q4

REPORT INFORMATION
  Report Type: 
  Country: None (occurrence: None)
  Receive Date: 20041118
  Receipt Date: 20041027
  Transmission Date: 20050328
  Serious: Yes (Hospitalization)
  Sender: FDA-Public Use
  Company Number: 240142

PATIENT
  Age: 33 Year
  Sex: Female
  Weight: 60 kg

DRUGS (5)
  1. NOVOLOG [Suspect]
     Indication: SUICIDE ATTEMPT
     Dosage: 200 IU, SUBCUTANEOUS
     Route: 058
  2. INSULIN GLARGINE [Concomitant]
  3. CARBAMAZEPINE [Concomitant]
  4. QUETIAPINE (QUETIAPINE) [Concomitant]
  5. FLUOXETINE [Concomitant]

REACTIONS (6)
  - BLOOD GLUCOSE DECREASED [None]
  - HYPERHIDROSIS [None]
  - MULTIPLE DRUG OVERDOSE INTENTIONAL [None]
  - SELF-MEDICATION [None]
  - SUICIDE ATTEMPT [None]
  - TREMOR [None]
